FAERS Safety Report 24412028 (Version 1)
Quarter: 2024Q4

REPORT INFORMATION
  Report Type: Spontaneous
  Country: AR (occurrence: AR)
  Receive Date: 20241008
  Receipt Date: 20241008
  Transmission Date: 20250115
  Serious: Yes (Other)
  Sender: PFIZER
  Company Number: AR-PFIZER INC-PV202400130446

PATIENT
  Age: 60 Year

DRUGS (2)
  1. AXITINIB [Suspect]
     Active Substance: AXITINIB
     Indication: Renal cancer metastatic
     Dosage: UNK, CYCLIC
  2. PEMBROLIZUMAB [Suspect]
     Active Substance: PEMBROLIZUMAB
     Indication: Renal cancer metastatic
     Dosage: UNK, CYCLIC

REACTIONS (1)
  - Pulmonary artery thrombosis [Unknown]
